FAERS Safety Report 14108275 (Version 1)
Quarter: 2017Q4

REPORT INFORMATION
  Report Type: Spontaneous
  Country: US (occurrence: US)
  Receive Date: 20171019
  Receipt Date: 20171019
  Transmission Date: 20180321
  Serious: Yes (Hospitalization, Other)
  Sender: FDA-Public Use
  Company Number: US-PFIZER INC-2017450352

PATIENT
  Age: 60 Year
  Sex: Female
  Weight: 62.6 kg

DRUGS (10)
  1. AZITHROMYCIN ANHYDROUS. [Concomitant]
     Active Substance: AZITHROMYCIN ANHYDROUS
     Indication: ANTIBIOTIC THERAPY
     Dosage: 250MG THREE TIMES A WEEK
     Dates: start: 201609
  2. ASPIRIN. [Concomitant]
     Active Substance: ASPIRIN
     Indication: BLOOD DISORDER
     Dosage: 325 MG, DAILY
     Dates: start: 201609
  3. CARVEDILOL. [Concomitant]
     Active Substance: CARVEDILOL
     Indication: HYPERTENSION
     Dosage: 12.5 MG, 2X/DAY
     Dates: start: 201609
  4. VALGANCICLOVIR. [Concomitant]
     Active Substance: VALGANCICLOVIR
     Dosage: 450 MG, 2X/DAY
     Dates: start: 201609
  5. VFEND [Suspect]
     Active Substance: VORICONAZOLE
     Indication: TRANSPLANTATION COMPLICATION
     Dosage: 250MG TWICE DAILY
     Dates: start: 201609
  6. PREDNISONE. [Concomitant]
     Active Substance: PREDNISONE
     Indication: STEROID THERAPY
     Dosage: 15 MG A DAY
     Dates: start: 201609
  7. GABAPENTIN. [Concomitant]
     Active Substance: GABAPENTIN
     Indication: BACK PAIN
     Dosage: 300 MG, 2X/DAY
     Dates: start: 201609
  8. PANTOPRAZOLE [Concomitant]
     Active Substance: PANTOPRAZOLE
     Indication: GASTROOESOPHAGEAL REFLUX DISEASE
     Dosage: 40 MG, 2X/DAY
     Dates: start: 201609
  9. TACROLIMUS. [Concomitant]
     Active Substance: TACROLIMUS
     Indication: TRANSPLANT REJECTION
     Dosage: 2 MG, 2X/DAY
     Dates: start: 201609
  10. BACTRIM DS [Concomitant]
     Active Substance: SULFAMETHOXAZOLE\TRIMETHOPRIM
     Indication: ANTIBIOTIC THERAPY
     Dosage: [SULFAMETHOXAZOLE 800MG]/[TRIMETHOPRIM 160MG] 800-160MG THREE TIMES A WEEK
     Dates: start: 201609

REACTIONS (2)
  - Respiratory failure [Recovering/Resolving]
  - Lung transplant rejection [Recovering/Resolving]

NARRATIVE: CASE EVENT DATE: 20171008
